FAERS Safety Report 24768143 (Version 1)
Quarter: 2024Q4

REPORT INFORMATION
  Report Type: Other
  Country: AL (occurrence: AL)
  Receive Date: 20241223
  Receipt Date: 20241223
  Transmission Date: 20250114
  Serious: Yes (Hospitalization)
  Sender: B BRAUN
  Company Number: AL-B.Braun Medical Inc.-2167676

PATIENT
  Age: 74 Year
  Sex: Female

DRUGS (5)
  1. ACETAMINOPHEN [Suspect]
     Active Substance: ACETAMINOPHEN
  2. Angiotensin II receptor blockers (ARB) [Concomitant]
  3. Metformin and Maninil [Concomitant]
  4. Insulin ?Lantus [Concomitant]
  5. Hydrochlorothiazid (HCT) [Concomitant]

REACTIONS (3)
  - Acute kidney injury [Recovered/Resolved]
  - Off label use [Recovered/Resolved]
  - Intentional overdose [Recovered/Resolved]
